FAERS Safety Report 22131709 (Version 6)
Quarter: 2025Q2

REPORT INFORMATION
  Report Type: Report from Study
  Country: US (occurrence: US)
  Receive Date: 20230323
  Receipt Date: 20250402
  Transmission Date: 20250717
  Serious: Yes (Hospitalization, Other)
  Sender: TAKEDA
  Company Number: US-TAKEDA-2021TUS060057

PATIENT
  Age: 43 Year
  Sex: Female
  Weight: 63 kg

DRUGS (19)
  1. HUMAN IMMUNOGLOBULIN G [Suspect]
     Active Substance: HUMAN IMMUNOGLOBULIN G
     Indication: Immunodeficiency common variable
     Dosage: 35 GRAM, Q4WEEKS
     Dates: start: 20160411
  2. HUMAN IMMUNOGLOBULIN G [Suspect]
     Active Substance: HUMAN IMMUNOGLOBULIN G
     Dosage: 35 GRAM, Q4WEEKS
     Dates: start: 20160907
  3. ACETAMINOPHEN [Concomitant]
     Active Substance: ACETAMINOPHEN
  4. DIPHENHYDRAMINE HYDROCHLORIDE [Concomitant]
     Active Substance: DIPHENHYDRAMINE HYDROCHLORIDE
  5. EPINEPHRINE [Concomitant]
     Active Substance: EPINEPHRINE
  6. ZOFRAN [Concomitant]
     Active Substance: ONDANSETRON HYDROCHLORIDE
  7. BELBUCA [Concomitant]
     Active Substance: BUPRENORPHINE HYDROCHLORIDE
  8. OXYCODONE AND ACETAMINOPHEN [Concomitant]
     Active Substance: ACETAMINOPHEN\OXYCODONE HYDROCHLORIDE
  9. TIZANIDINE HYDROCHLORIDE [Concomitant]
     Active Substance: TIZANIDINE HYDROCHLORIDE
  10. DYMISTA [Concomitant]
     Active Substance: AZELASTINE HYDROCHLORIDE\FLUTICASONE PROPIONATE
  11. EFFEXOR [Concomitant]
     Active Substance: VENLAFAXINE HYDROCHLORIDE
  12. FLUBLOK QUADRIVALENT NOS [Concomitant]
     Active Substance: INFLUENZA VIRUS VACCINE
  13. PROMETHAZINE [Concomitant]
     Active Substance: PROMETHAZINE HYDROCHLORIDE
  14. SODIUM CHLORIDE [Concomitant]
     Active Substance: SODIUM CHLORIDE
  15. DIFLUCAN [Concomitant]
     Active Substance: FLUCONAZOLE
  16. ACETAMINOPHEN\HYDROCODONE [Concomitant]
     Active Substance: ACETAMINOPHEN\HYDROCODONE
  17. LEVOTHYROXINE SODIUM [Concomitant]
     Active Substance: LEVOTHYROXINE SODIUM
  18. DIPHENHYDRAMINE [Concomitant]
     Active Substance: DIPHENHYDRAMINE
  19. Lmx [Concomitant]

REACTIONS (12)
  - Choking [Unknown]
  - Haemorrhage [Not Recovered/Not Resolved]
  - Rectal cancer [Unknown]
  - Neoplasm malignant [Unknown]
  - Sinus disorder [Unknown]
  - Head injury [Unknown]
  - Productive cough [Unknown]
  - Inappropriate schedule of product administration [Unknown]
  - Sinusitis [Unknown]
  - Upper respiratory tract infection [Unknown]
  - Nasal congestion [Unknown]
  - Dizziness [Unknown]

NARRATIVE: CASE EVENT DATE: 20220110
